FAERS Safety Report 25310409 (Version 2)
Quarter: 2025Q2

REPORT INFORMATION
  Report Type: Spontaneous
  Country: US (occurrence: US)
  Receive Date: 20250514
  Receipt Date: 20250514
  Transmission Date: 20250717
  Serious: Yes (Other)
  Sender: CSL BEHRING
  Company Number: US-BEH-2025204073

PATIENT
  Sex: Female
  Weight: 160.2 kg

DRUGS (2)
  1. MIRCERA [Suspect]
     Active Substance: METHOXY POLYETHYLENE GLYCOL-EPOETIN BETA
     Route: 065
  2. VENOFER [Suspect]
     Active Substance: IRON SUCROSE
     Route: 065

REACTIONS (3)
  - Aplasia pure red cell [Unknown]
  - Therapeutic response decreased [Unknown]
  - Anaemia [Unknown]
